FAERS Safety Report 6971275-X (Version None)
Quarter: 2010Q3

REPORT INFORMATION
  Report Type: 
  Country: None (occurrence: None)
  Receive Date: 20100908
  Receipt Date: 20100826
  Transmission Date: 20110219
  Serious: No
  Sender: FDA-Public Use
  Company Number: US-ROXANE LABORATORIES, INC.-2010-RO-00955RO

PATIENT
  Sex: Female

DRUGS (3)
  1. MORPHINE [Suspect]
     Indication: NERVE INJURY
     Dosage: 15 MG
     Dates: start: 20091109
  2. WHITE WILLOW [Concomitant]
     Indication: THERAPEUTIC PROCEDURE
  3. ASPIRIN [Concomitant]

REACTIONS (3)
  - DRUG INEFFECTIVE [None]
  - FEELING ABNORMAL [None]
  - PAIN [None]
